FAERS Safety Report 17105580 (Version 2)
Quarter: 2019Q4

REPORT INFORMATION
  Report Type: Spontaneous
  Country: US (occurrence: US)
  Receive Date: 20191203
  Receipt Date: 20191227
  Transmission Date: 20200122
  Serious: Yes (Other)
  Sender: FDA-Public Use
  Company Number: US-ASTRAZENECA-2019SF72730

PATIENT
  Sex: Male

DRUGS (1)
  1. BEVESPI AEROSPHERE [Suspect]
     Active Substance: FORMOTEROL FUMARATE\GLYCOPYRROLATE
     Indication: CHRONIC OBSTRUCTIVE PULMONARY DISEASE
     Dosage: 9 UG/4.8 UG, TWO PUFFS IN THE MORNING AND TWO PUFFS IN THE EVENING
     Route: 055

REACTIONS (3)
  - Neoplasm malignant [Recovered/Resolved]
  - Wrong technique in device usage process [Unknown]
  - Device issue [Unknown]
